FAERS Safety Report 14499258 (Version 1)
Quarter: 2018Q1

REPORT INFORMATION
  Report Type: Spontaneous
  Country: US (occurrence: US)
  Receive Date: 20180207
  Receipt Date: 20180207
  Transmission Date: 20180509
  Serious: No
  Sender: FDA-Public Use
  Company Number: US-JAZZ-2017-US-010676

PATIENT
  Sex: Female

DRUGS (3)
  1. PRIALT [Suspect]
     Active Substance: ZICONOTIDE ACETATE
     Indication: SPINAL PAIN
     Dosage: UNK ?G, UNK
     Route: 037
     Dates: start: 2017
  2. FENTANYL. [Suspect]
     Active Substance: FENTANYL
     Indication: SPINAL PAIN
     Route: 037
  3. DILAUDID [Suspect]
     Active Substance: HYDROMORPHONE HYDROCHLORIDE
     Indication: SPINAL PAIN
     Route: 037

REACTIONS (2)
  - Drug ineffective [Not Recovered/Not Resolved]
  - Hallucination [Recovered/Resolved]

NARRATIVE: CASE EVENT DATE: 2017
